FAERS Safety Report 5574650-3 (Version None)
Quarter: 2007Q4

REPORT INFORMATION
  Report Type: 
  Country: None (occurrence: None)
  Receive Date: 20071226
  Receipt Date: 20071226
  Transmission Date: 20080405
  Serious: No
  Sender: FDA-Public Use
  Company Number: None

PATIENT
  Age: 2 Year
  Sex: Male
  Weight: 12.7007 kg

DRUGS (1)
  1. SINGULAIR [Suspect]
     Indication: ASTHMA
     Dosage: 1 TABLET ONCE A DAY PO
     Route: 048
     Dates: start: 20071125, end: 20071220

REACTIONS (10)
  - AGGRESSION [None]
  - EAR PAIN [None]
  - HALLUCINATION, VISUAL [None]
  - HEADACHE [None]
  - INSOMNIA [None]
  - NIGHTMARE [None]
  - PAIN IN EXTREMITY [None]
  - PHYSICAL ABUSE [None]
  - SCREAMING [None]
  - SLEEP TERROR [None]
